FAERS Safety Report 5673168-7 (Version None)
Quarter: 2008Q1

REPORT INFORMATION
  Report Type: 
  Country: None (occurrence: None)
  Receive Date: 20080319
  Receipt Date: 20080314
  Transmission Date: 20080703
  Serious: Yes (Other)
  Sender: FDA-Public Use
  Company Number: JP-BRISTOL-MYERS SQUIBB COMPANY-13990908

PATIENT
  Age: 48 Year
  Sex: Male

DRUGS (3)
  1. EFAVIRENZ [Suspect]
     Indication: HIV INFECTION
     Dosage: RESTARTED 01-AUG-2006
     Route: 048
     Dates: start: 20050817
  2. ZEFIX [Suspect]
     Indication: HEPATITIS B
     Route: 048
     Dates: start: 20060801
  3. KALETRA [Suspect]
     Indication: HIV INFECTION
     Dosage: 2 DOSES BID FROM 01-AUG-06
     Route: 048
     Dates: start: 20060516

REACTIONS (1)
  - HYPERLACTACIDAEMIA [None]
